FAERS Safety Report 7055850-2 (Version None)
Quarter: 2010Q4

REPORT INFORMATION
  Report Type: 
  Country: None (occurrence: None)
  Receive Date: 20101018
  Receipt Date: 20100921
  Transmission Date: 20110411
  Serious: No
  Sender: FDA-Public Use
  Company Number: 2010-00863

PATIENT
  Age: 39 Year
  Sex: Female
  Weight: 61.2356 kg

DRUGS (2)
  1. ZICAM COLD REMEDY PLUS LIQUI-LOZ [Suspect]
     Dosage: 3 DOSES X 3 DOSES
     Dates: start: 20100920, end: 20100921
  2. ORTHO-NOVUM [Concomitant]

REACTIONS (1)
  - AGEUSIA [None]
